FAERS Safety Report 6356500-0 (Version None)
Quarter: 2009Q3

REPORT INFORMATION
  Report Type: 
  Country: None (occurrence: None)
  Receive Date: 20090915
  Receipt Date: 20090909
  Transmission Date: 20100115
  Serious: Yes (Death, Hospitalization)
  Sender: FDA-Public Use
  Company Number: B0584000A

PATIENT
  Age: 60 Year
  Sex: Male

DRUGS (3)
  1. ARIXTRA [Suspect]
     Route: 042
     Dates: start: 20090701
  2. ASPIRIN [Concomitant]
  3. PLAVIX [Concomitant]

REACTIONS (1)
  - CEREBRAL HAEMORRHAGE [None]
